FAERS Safety Report 22075017 (Version 1)
Quarter: 2023Q1

REPORT INFORMATION
  Report Type: Spontaneous
  Country: US (occurrence: US)
  Receive Date: 20230308
  Receipt Date: 20230308
  Transmission Date: 20230417
  Serious: No
  Sender: FDA-Public Use
  Company Number: US-ALLERGAN-2226919US

PATIENT
  Sex: Male
  Weight: 62.6 kg

DRUGS (1)
  1. MESALAMINE [Suspect]
     Active Substance: MESALAMINE
     Indication: Colitis ulcerative
     Dosage: 1000 MG DAILY

REACTIONS (3)
  - Poor quality product administered [Unknown]
  - Anorectal discomfort [Not Recovered/Not Resolved]
  - Product quality issue [Unknown]
